FAERS Safety Report 4425711-3 (Version None)
Quarter: 2004Q3

REPORT INFORMATION
  Report Type: 
  Country: None (occurrence: None)
  Receive Date: 20040810
  Receipt Date: 20040618
  Transmission Date: 20050211
  Serious: Yes (Other)
  Sender: FDA-Public Use
  Company Number: 2004BL002984

PATIENT
  Age: 47 Year
  Sex: Male
  Weight: 95.2554 kg

DRUGS (7)
  1. PHENYLEPHRINE HYDROCHLORIDE OPHTHALMIC SOLUTION USP, 2.5% [Suspect]
     Indication: CATARACT OPERATION
     Dosage: 27 GTT; DAILY; OPHTHALMIC
     Route: 047
     Dates: start: 20040413, end: 20040413
  2. PHENYLEPHRINE HYDROCHLORIDE OPHTHALMIC SOLUTION USP, 2.5% [Suspect]
  3. PHENYLEPHRINE HYDROCHLORIDE OPHTHALMIC SOLUTION USP, 2.5% [Suspect]
  4. PHENYLEPHRINE HYDROCHLORIDE OPHTHALMIC SOLUTION USP, 2.5% [Suspect]
  5. AMVISC PLUS (MEDICAL DEVICE) [Suspect]
     Indication: CATARACT OPERATION
     Dates: start: 20040413, end: 20040413
  6. AMVISC PLUS (MEDICAL DEVICE) [Suspect]
  7. AMVISC PLUS (MEDICAL DEVICE) [Suspect]

REACTIONS (5)
  - ENDOPHTHALMITIS [None]
  - IATROGENIC INJURY [None]
  - OCULAR DISCOMFORT [None]
  - VISION BLURRED [None]
  - VISUAL ACUITY REDUCED [None]
